FAERS Safety Report 6420235-6 (Version None)
Quarter: 2009Q4

REPORT INFORMATION
  Report Type: 
  Country: None (occurrence: None)
  Receive Date: 20091029
  Receipt Date: 20091023
  Transmission Date: 20100525
  Serious: Yes (Death, Disabling, Other)
  Sender: FDA-Public Use
  Company Number: PHHY2009JP12541

PATIENT
  Sex: Male
  Weight: 40 kg

DRUGS (6)
  1. ZOLEDRONIC ACID [Suspect]
     Indication: METASTASES TO BONE
     Dosage: 4 MG, EVERY 4 WEEKS
     Route: 041
     Dates: start: 20070521, end: 20080206
  2. CALCIUM CARBONATE [Concomitant]
     Dosage: 1.5 G, UNK
     Route: 048
     Dates: start: 20070611, end: 20080528
  3. RINDERON [Concomitant]
     Dosage: 1 MG, UNK
     Route: 048
     Dates: start: 20070820, end: 20080528
  4. GASTER D [Concomitant]
     Dosage: 20 MG, UNK
     Route: 048
     Dates: start: 20070820, end: 20080528
  5. CASODEX [Concomitant]
     Dosage: 80 MG, UNK
     Route: 048
     Dates: start: 20070402, end: 20070820
  6. ONEALFA [Concomitant]
     Dosage: 1 UG, UNK
     Route: 048
     Dates: start: 20080305, end: 20080528

REACTIONS (7)
  - ABSCESS JAW [None]
  - ALVEOLAR OSTEITIS [None]
  - BONE FISTULA [None]
  - DENTAL CARE [None]
  - LUNG NEOPLASM MALIGNANT [None]
  - MALIGNANT NEOPLASM PROGRESSION [None]
  - OSTEONECROSIS [None]
